FAERS Safety Report 25427024 (Version 2)
Quarter: 2025Q3

REPORT INFORMATION
  Report Type: Spontaneous
  Country: EU (occurrence: EU)
  Receive Date: 20250612
  Receipt Date: 20250709
  Transmission Date: 20251021
  Serious: Yes (Hospitalization)
  Sender: AUROBINDO
  Company Number: EU-ROCHE-10000286310

PATIENT
  Age: 62 Year

DRUGS (2)
  1. CARBOPLATIN [Suspect]
     Active Substance: CARBOPLATIN
     Indication: Neoplasm malignant
     Route: 042
     Dates: start: 20250207
  2. GEMCITABINE [Suspect]
     Active Substance: GEMCITABINE
     Indication: Neoplasm malignant
     Route: 042
     Dates: start: 20250207

REACTIONS (2)
  - Inflammatory marker increased [Not Recovered/Not Resolved]
  - Pain management [Recovering/Resolving]

NARRATIVE: CASE EVENT DATE: 20250514
